FAERS Safety Report 8798997 (Version 1)
Quarter: 2012Q4

REPORT INFORMATION
  Report Type: 
  Country: US (occurrence: US)
  Receive Date: 20120920
  Receipt Date: 20120920
  Transmission Date: 20130627
  Serious: Yes (Other)
  Sender: FDA-Public Use
  Company Number: US-ELI_LILLY_AND_COMPANY-US201209003553

PATIENT
  Age: 53 Year
  Sex: Female

DRUGS (5)
  1. CYMBALTA [Suspect]
     Dosage: 60 mg, UNK
     Dates: start: 20111206
  2. METFORMIN [Concomitant]
     Dosage: 500 mg, unknown
  3. LIPITOR [Concomitant]
  4. LISINOPRIL [Concomitant]
     Dosage: 10 mg, unknown
  5. SYNTHROID [Concomitant]
     Dosage: 120 mg, unknown

REACTIONS (2)
  - Obesity [Not Recovered/Not Resolved]
  - Hepatic steatosis [Unknown]
